FAERS Safety Report 22385841 (Version 1)
Quarter: 2023Q2

REPORT INFORMATION
  Report Type: Spontaneous
  Country: US (occurrence: US)
  Receive Date: 20230530
  Receipt Date: 20230530
  Transmission Date: 20230722
  Serious: No
  Sender: FDA-Public Use
  Company Number: US-PFIZER INC-202300204967

PATIENT
  Age: 68 Year
  Sex: Female
  Weight: 71.655 kg

DRUGS (2)
  1. IBRANCE [Suspect]
     Active Substance: PALBOCICLIB
     Indication: Breast cancer female
     Dosage: 100 MG WITH 1 125MG DAILY FOR 21 DAYS ON 7 DAYS OFF
     Dates: start: 201710
  2. FULVESTRANT [Concomitant]
     Active Substance: FULVESTRANT
     Dosage: UNK
     Dates: start: 201710

REACTIONS (2)
  - Headache [Unknown]
  - Off label use [Unknown]
